FAERS Safety Report 12954392 (Version 6)
Quarter: 2019Q3

REPORT INFORMATION
  Report Type: Spontaneous
  Country: US (occurrence: US)
  Receive Date: 20161118
  Receipt Date: 20190903
  Transmission Date: 20191004
  Serious: No
  Sender: FDA-Public Use
  Company Number: US-PFIZER INC-2016531533

PATIENT
  Age: 66 Year
  Sex: Female
  Weight: 63 kg

DRUGS (8)
  1. OXYCODONE HYDROCHLORIDE. [Concomitant]
     Active Substance: OXYCODONE HYDROCHLORIDE
     Indication: PAIN
     Dosage: 10 MG, AS NEEDED (ONE PO TID OR QID PRN DNF)
     Route: 048
  2. LYRICA [Suspect]
     Active Substance: PREGABALIN
     Indication: PAIN
     Dosage: 75 MG, 1X/DAY (ONCE A DAY TAKE ONE CAPSULE PO (ORAL) DAILY)
     Route: 048
  3. LYRICA [Suspect]
     Active Substance: PREGABALIN
     Indication: PAIN
  4. NEURONTIN [Concomitant]
     Active Substance: GABAPENTIN
     Dosage: 1200 MG, DAILY (1 CAP PO QAM, 1 CAP PO QPM, 2 CAPS PO QHS)
     Route: 048
  5. VOLTAREN [Concomitant]
     Active Substance: DICLOFENAC SODIUM
     Dosage: 1 %, AS NEEDED (APPLY AS DIRECTED TO AFFECTED AREA TID)
  6. LYRICA [Suspect]
     Active Substance: PREGABALIN
     Indication: FIBROMYALGIA
     Dosage: 75 MG, 2X/DAY
     Route: 048
  7. CYMBALTA [Concomitant]
     Active Substance: DULOXETINE HYDROCHLORIDE
     Dosage: 60 MG, 1X/DAY
     Route: 048
  8. OMEPRAZOLE. [Concomitant]
     Active Substance: OMEPRAZOLE
     Dosage: 20 MG, DAILY
     Route: 048

REACTIONS (13)
  - Dizziness [Unknown]
  - Arthralgia [Unknown]
  - Asthenia [Unknown]
  - Musculoskeletal pain [Unknown]
  - Muscle spasms [Unknown]
  - Eating disorder [Unknown]
  - Drug ineffective [Unknown]
  - Fatigue [Unknown]
  - Headache [Unknown]
  - Amnesia [Unknown]
  - Back pain [Unknown]
  - Depression [Unknown]
  - Pollakiuria [Unknown]
